FAERS Safety Report 8456924 (Version 7)
Quarter: 2014Q3

REPORT INFORMATION
  Report Type: Spontaneous
  Country: US (occurrence: None)
  Receive Date: 20120307
  Receipt Date: 20140801
  Transmission Date: 20150326
  Serious: Yes (Hospitalization, Other)
  Sender: FDA-Public Use
  Company Number: CIP11002243

PATIENT
  Age: 58 Year
  Sex: Female

DRUGS (63)
  1. ACTONEL [Suspect]
     Active Substance: RISEDRONATE SODIUM
     Indication: OSTEOPOROSIS
     Dosage: 35 MG ONCE WEEKLY, ORAL
     Route: 048
     Dates: start: 20041206, end: 20090313
  2. RECLAST [Suspect]
     Active Substance: ZOLEDRONIC ACID
     Indication: OSTEOPOROSIS
     Dates: start: 201011, end: 20111129
  3. PREVIDENT [Concomitant]
     Active Substance: SODIUM FLUORIDE
  4. CARAFATE [Concomitant]
     Active Substance: SUCRALFATE
  5. CYMBALTA [Concomitant]
     Active Substance: DULOXETINE HYDROCHLORIDE
  6. PREMARIN [Concomitant]
     Active Substance: ESTROGENS, CONJUGATED
  7. FERGON [Concomitant]
     Active Substance: FERROUS GLUCONATE
  8. MICARDIS [Concomitant]
     Active Substance: TELMISARTAN
  9. QUININE SULFATE. [Concomitant]
     Active Substance: QUININE SULFATE
  10. CLONAZEPAM. [Concomitant]
     Active Substance: CLONAZEPAM
  11. PRECOSE [Concomitant]
     Active Substance: ACARBOSE
  12. MECLIZINE [Concomitant]
     Active Substance: MECLIZINE\MECLIZINE HYDROCHLORIDE
  13. NALTREXONE HYDROCHLORIDE. [Concomitant]
     Active Substance: NALTREXONE HYDROCHLORIDE
  14. CHLORAL HYDRATE [Concomitant]
     Active Substance: CHLORAL HYDRATE
  15. ZOMIG [Concomitant]
     Active Substance: ZOLMITRIPTAN
  16. AMOXICILLIN. [Concomitant]
     Active Substance: AMOXICILLIN
  17. SYNTHROID [Concomitant]
     Active Substance: LEVOTHYROXINE SODIUM
  18. PREVALITE [Concomitant]
     Active Substance: CHOLESTYRAMINE
  19. LUNESTA [Concomitant]
     Active Substance: ESZOPICLONE
  20. PAROXETINE HYDROCHLORIDE. [Concomitant]
     Active Substance: PAROXETINE HYDROCHLORIDE
  21. TERAZOSIN HYDROCHLORIDE. [Concomitant]
     Active Substance: TERAZOSIN HYDROCHLORIDE
  22. ACETAMINOPHEN AND CODEINE [Concomitant]
     Active Substance: ACETAMINOPHEN\CODEINE PHOSPHATE
  23. SEROQUEL [Concomitant]
     Active Substance: QUETIAPINE FUMARATE
  24. ACIPHEX [Concomitant]
     Active Substance: RABEPRAZOLE SODIUM
  25. NITROFURANTOIN. [Concomitant]
     Active Substance: NITROFURANTOIN
  26. FOLPLEX [Concomitant]
     Active Substance: CHOLECALCIFEROL\CYANOCOBALAMIN CO-57\FOLIC ACID\PYRIDOXINE HYDROCHLORIDE
  27. CIMETIDINE. [Concomitant]
     Active Substance: CIMETIDINE
  28. FEXOFENADINE [Concomitant]
     Active Substance: FEXOFENADINE\FEXOFENADINE HYDROCHLORIDE
  29. VAGIFEM [Concomitant]
     Active Substance: ESTRADIOL
  30. EXCEDRIN MIGRAINE [Concomitant]
     Active Substance: ACETAMINOPHEN\ASPIRIN\CAFFEINE
  31. FOSAMAX [Suspect]
     Active Substance: ALENDRONATE SODIUM
     Indication: OSTEOPOROSIS
     Dosage: 70 MG SINGLE DOSE, ORAL
     Route: 048
     Dates: start: 20050929, end: 20050929
  32. SONATA [Concomitant]
     Active Substance: ZALEPLON
  33. GABITRIL [Concomitant]
     Active Substance: TIAGABINE HYDROCHLORIDE
  34. AXERT [Concomitant]
     Active Substance: ALMOTRIPTAN MALATE
  35. ANTIPYRINE AND BENZOCAINE [Concomitant]
     Active Substance: ANTIPYRINE\BENZOCAINE
  36. ENABLEX [Concomitant]
     Active Substance: DARIFENACIN\DARIFENACIN HYDROBROMIDE
  37. ORPHENADRINE CITRATE. [Concomitant]
     Active Substance: ORPHENADRINE CITRATE
  38. MUPIROCIN. [Concomitant]
     Active Substance: MUPIROCIN
  39. NYSTATIN AND TRIAMCINOLONE [Concomitant]
     Active Substance: NYSTATIN\TRIAMCINOLONE ACETONIDE
  40. VITAMIN B12 [Concomitant]
     Active Substance: CYANOCOBALAMIN
  41. TRAMADOL HYDROCHLORIDE AND ACETAMINOPHEN [Concomitant]
     Active Substance: ACETAMINOPHEN\TRAMADOL HYDROCHLORIDE
  42. MIRTAZAPINE (MIRTAZAPINE) [Concomitant]
     Active Substance: MIRTAZAPINE
  43. DOXAZOSIN MESYLATE. [Concomitant]
     Active Substance: DOXAZOSIN MESYLATE
  44. CLARINEX [Concomitant]
     Active Substance: DESLORATADINE
  45. VITAMIN C [Concomitant]
     Active Substance: ASCORBIC ACID
  46. BONIVA [Suspect]
     Active Substance: IBANDRONATE SODIUM
     Indication: OSTEOPOROSIS
     Dosage: 150 MG ONCE MONTHLY, ORAL
     Route: 048
     Dates: start: 20060306, end: 20091130
  47. TOPAMAX [Concomitant]
     Active Substance: TOPIRAMATE
  48. CIPROFLOXACIN. [Concomitant]
     Active Substance: CIPROFLOXACIN
  49. ACETAMINOPHEN AND BUTALBITAL [Concomitant]
  50. PYRIDIUM [Concomitant]
     Active Substance: PHENAZOPYRIDINE
  51. TRIAMCINOLONE [Concomitant]
     Active Substance: TRIAMCINOLONE
  52. NORVASC [Concomitant]
     Active Substance: AMLODIPINE BESYLATE
  53. CHLORPROMAZINE [Concomitant]
     Active Substance: CHLORPROMAZINE
  54. CARISOPRODOL. [Concomitant]
     Active Substance: CARISOPRODOL
  55. CENTRUM SILVER [Concomitant]
     Active Substance: VITAMINS
  56. BENZTROPINE MESYLATE. [Concomitant]
     Active Substance: BENZTROPINE MESYLATE
  57. HALOPERIDOL LACTATE. [Concomitant]
     Active Substance: HALOPERIDOL LACTATE
  58. ALLEGRA-D [Concomitant]
     Active Substance: FEXOFENADINE\PSEUDOEPHEDRINE
  59. CYCLOBENZAPRINE [Concomitant]
     Active Substance: CYCLOBENZAPRINE
  60. ZOFRAN [Concomitant]
     Active Substance: ONDANSETRON HYDROCHLORIDE
  61. DOXEPIN HYDROCHLORIDE. [Concomitant]
     Active Substance: DOXEPIN HYDROCHLORIDE
  62. ZYRTEC [Concomitant]
     Active Substance: CETIRIZINE HYDROCHLORIDE
  63. HYDROXYZINE PAMOATE. [Concomitant]
     Active Substance: HYDROXYZINE PAMOATE

REACTIONS (18)
  - Monoparesis [None]
  - Fracture displacement [None]
  - Arthralgia [None]
  - Mobility decreased [None]
  - Osteoporotic fracture [None]
  - Groin pain [None]
  - Muscle injury [None]
  - Femur fracture [None]
  - Dysstasia [None]
  - Haematoma [None]
  - Low turnover osteopathy [None]
  - Stress fracture [None]
  - Pathological fracture [None]
  - Bone disorder [None]
  - Fracture nonunion [None]
  - Pain [None]
  - Fracture delayed union [None]
  - Mass [None]

NARRATIVE: CASE EVENT DATE: 20090908
